FAERS Safety Report 4303291-0 (Version None)
Quarter: 2004Q1

REPORT INFORMATION
  Report Type: 
  Country: None (occurrence: None)
  Receive Date: 20040223
  Receipt Date: 20040212
  Transmission Date: 20041129
  Serious: Yes (Other)
  Sender: FDA-Public Use
  Company Number: 2004197851JP

PATIENT
  Age: 27 Year
  Sex: Male
  Weight: 65 kg

DRUGS (1)
  1. TROBICIN [Suspect]
     Indication: GONORRHOEA
     Dosage: 2 G, SINGLE, INTRAMUSCULAR
     Route: 030
     Dates: start: 20040202, end: 20040202

REACTIONS (5)
  - BLOOD PRESSURE ABNORMAL [None]
  - FEELING ABNORMAL [None]
  - INJECTION SITE ERYTHEMA [None]
  - SHOCK [None]
  - SPEECH DISORDER [None]
